FAERS Safety Report 21884516 (Version 3)
Quarter: 2023Q1

REPORT INFORMATION
  Report Type: Spontaneous
  Country: CA (occurrence: CA)
  Receive Date: 20230119
  Receipt Date: 20230131
  Transmission Date: 20230418
  Serious: Yes (Other)
  Sender: FDA-Public Use
  Company Number: CA-PFIZER INC-PV202300008474

PATIENT
  Age: 78 Year
  Sex: Male

DRUGS (3)
  1. CARBOPLATIN [Suspect]
     Active Substance: CARBOPLATIN
     Indication: Adenocarcinoma gastric
     Dosage: DOSE REDUCED BY 20-25% FROM A STANDARD DOSE OF 5 AUC, FIVE CYCLES
     Dates: start: 2021
  2. TRASTUZUMAB [Suspect]
     Active Substance: TRASTUZUMAB
     Indication: Adenocarcinoma gastric
     Dosage: UNK, FIVE CYCLES
     Dates: start: 2021
  3. RALTITREXED [Suspect]
     Active Substance: RALTITREXED
     Indication: Adenocarcinoma gastric
     Dosage: DOSE REDUCED BY 30-40% FROM A STANDARD DOSE OF 3 MG/M2, FIVE CYCLES
     Dates: start: 2021

REACTIONS (4)
  - Myelosuppression [Unknown]
  - Fatigue [Unknown]
  - Anaemia [Unknown]
  - Off label use [Unknown]
